FAERS Safety Report 4471498-8 (Version None)
Quarter: 2004Q4

REPORT INFORMATION
  Report Type: 
  Country: None (occurrence: None)
  Receive Date: 20041012
  Receipt Date: 20041004
  Transmission Date: 20050328
  Serious: Yes (Hospitalization)
  Sender: FDA-Public Use
  Company Number: DEWYE084204OCT04

PATIENT

DRUGS (1)
  1. ENBREL [Suspect]
     Dosage: UNKNOWN
     Route: 058

REACTIONS (1)
  - SEPSIS [None]
